FAERS Safety Report 7668425-9 (Version None)
Quarter: 2011Q3

REPORT INFORMATION
  Report Type: 
  Country: None (occurrence: None)
  Receive Date: 20110808
  Receipt Date: 20110727
  Transmission Date: 20111222
  Serious: Yes (Hospitalization)
  Sender: FDA-Public Use
  Company Number: FR-ELI_LILLY_AND_COMPANY-FR201107008036

PATIENT
  Sex: Female

DRUGS (10)
  1. PEMETREXED [Suspect]
     Indication: NON-SMALL CELL LUNG CANCER
     Dosage: UNK
     Route: 042
     Dates: start: 20110324
  2. CISPLATIN [Suspect]
     Indication: NON-SMALL CELL LUNG CANCER
     Dosage: UNK
     Route: 042
     Dates: start: 20110324
  3. ASPIRIN [Concomitant]
  4. LORAZEPAM [Concomitant]
  5. PREVISCAN [Concomitant]
  6. CETUXIMAB [Suspect]
     Indication: NON-SMALL CELL LUNG CANCER
     Dosage: UNK, 1 IN 1 WEEK
     Route: 042
     Dates: start: 20110324, end: 20110526
  7. RADIATION [Suspect]
     Indication: NON-SMALL CELL LUNG CANCER
     Dosage: UNK
     Route: 042
     Dates: start: 20110414
  8. CORDARONE [Concomitant]
  9. NEXIUM [Concomitant]
  10. GAVISCON                           /00237601/ [Concomitant]

REACTIONS (6)
  - PALMAR-PLANTAR ERYTHRODYSAESTHESIA SYNDROME [None]
  - GENERAL PHYSICAL HEALTH DETERIORATION [None]
  - APLASIA [None]
  - THROMBOCYTOPENIA [None]
  - ANAEMIA [None]
  - NEUTROPENIA [None]
